FAERS Safety Report 6268187-6 (Version None)
Quarter: 2009Q3

REPORT INFORMATION
  Report Type: 
  Country: None (occurrence: None)
  Receive Date: 20090714
  Receipt Date: 20090714
  Transmission Date: 20100115
  Serious: No
  Sender: FDA-Public Use
  Company Number: None

PATIENT
  Age: 72 Year
  Sex: Male
  Weight: 64 kg

DRUGS (1)
  1. ROSUVASTATIN CALCIUM [Suspect]
     Indication: HYPERLIPIDAEMIA
     Dosage: 20 MG EVERYDAY PO
     Route: 048
     Dates: start: 20081212, end: 20090706

REACTIONS (8)
  - ABDOMINAL PAIN [None]
  - CHROMATURIA [None]
  - CONSTIPATION [None]
  - HAEMATURIA [None]
  - LOW DENSITY LIPOPROTEIN INCREASED [None]
  - MYALGIA [None]
  - PROSTATITIS [None]
  - RHABDOMYOLYSIS [None]
